FAERS Safety Report 7492571-6 (Version None)
Quarter: 2011Q2

REPORT INFORMATION
  Report Type: 
  Country: None (occurrence: None)
  Receive Date: 20110519
  Receipt Date: 20110513
  Transmission Date: 20111010
  Serious: Yes (Hospitalization)
  Sender: FDA-Public Use
  Company Number: US-PFIZER INC-2011104531

PATIENT
  Age: 60 Year
  Sex: Male

DRUGS (10)
  1. ATORVASTATIN CALCIUM [Suspect]
     Dosage: UNK
  2. OMEPRAZOLE [Suspect]
     Dosage: UNK
  3. TESTOSTERONE [Suspect]
     Dosage: UNK
     Route: 062
  4. BUDESONIDE [Suspect]
     Dosage: UNK
  5. VENLAFAXINE HCL [Suspect]
     Dosage: UNK
  6. PREDNISOLONE [Suspect]
     Dosage: UNK
  7. ST. JOHN'S WORT [Suspect]
     Dosage: UNK
  8. AZITHROMYCIN [Suspect]
     Indication: UPPER RESPIRATORY TRACT INFECTION
     Dosage: UNK
  9. ASPIRIN [Suspect]
     Indication: CARDIOVASCULAR EVENT PROPHYLAXIS
     Dosage: UNK
  10. DIAZEPAM [Suspect]
     Dosage: UNK

REACTIONS (3)
  - ORTHOSTATIC HYPOTENSION [None]
  - TUBULOINTERSTITIAL NEPHRITIS [None]
  - GASTROINTESTINAL HAEMORRHAGE [None]
